FAERS Safety Report 8169000-2 (Version None)
Quarter: 2012Q1

REPORT INFORMATION
  Report Type: 
  Country: None (occurrence: None)
  Receive Date: 20120227
  Receipt Date: 20120217
  Transmission Date: 20120608
  Serious: Yes (Other)
  Sender: FDA-Public Use
  Company Number: PHHY2012NL014083

PATIENT
  Age: 75 Year
  Sex: Female

DRUGS (1)
  1. HYDROXYCHLOROQUINE SULFATE [Suspect]
     Indication: RHEUMATOID ARTHRITIS

REACTIONS (9)
  - DYSPNOEA [None]
  - PULMONARY OEDEMA [None]
  - CARDIAC HYPERTROPHY [None]
  - BLOOD PRESSURE SYSTOLIC INCREASED [None]
  - ACUTE LEFT VENTRICULAR FAILURE [None]
  - RALES [None]
  - SINUS TACHYCARDIA [None]
  - CARDIOMYOPATHY [None]
  - BUNDLE BRANCH BLOCK LEFT [None]
